FAERS Safety Report 4581229-9 (Version None)
Quarter: 2005Q1

REPORT INFORMATION
  Report Type: 
  Country: None (occurrence: None)
  Receive Date: 20050214
  Receipt Date: 20040831
  Transmission Date: 20050727
  Serious: Yes (Other)
  Sender: FDA-Public Use
  Company Number: US-GLAXOSMITHKLINE-A0524722A

PATIENT
  Age: 23 Year
  Sex: Female
  Weight: 72.3 kg

DRUGS (2)
  1. LAMICTAL [Suspect]
     Indication: DRUG USE FOR UNKNOWN INDICATION
     Route: 048
     Dates: start: 20040616, end: 20040814
  2. DEPAKOTE [Concomitant]
     Route: 048

REACTIONS (3)
  - ECZEMA [None]
  - PRURITUS [None]
  - RASH [None]
